FAERS Safety Report 11748515 (Version 2)
Quarter: 2016Q1

REPORT INFORMATION
  Report Type: Report from Study
  Country: AU (occurrence: AU)
  Receive Date: 20151117
  Receipt Date: 20160119
  Transmission Date: 20160525
  Serious: Yes (Hospitalization, Other)
  Sender: FDA-Public Use
  Company Number: AU-BRISTOL-MYERS SQUIBB COMPANY-BMS-2015-065446

PATIENT
  Age: 87 Year
  Sex: Female

DRUGS (4)
  1. STEMETIL                           /00013301/ [Concomitant]
     Active Substance: PROCHLORPERAZINE
     Indication: VERTIGO
     Route: 065
  2. ATORVASTATIN [Concomitant]
     Active Substance: ATORVASTATIN
     Indication: PRODUCT USED FOR UNKNOWN INDICATION
     Route: 065
  3. METOPROLOL. [Concomitant]
     Active Substance: METOPROLOL
     Indication: PRODUCT USED FOR UNKNOWN INDICATION
     Route: 065
  4. ABATACEPT [Suspect]
     Active Substance: ABATACEPT
     Indication: RHEUMATOID ARTHRITIS
     Dosage: 750 MG, UNK
     Route: 042
     Dates: start: 20141010

REACTIONS (5)
  - Ageusia [Unknown]
  - Anosmia [Unknown]
  - Lower respiratory tract infection [Unknown]
  - Vertigo [Unknown]
  - Sinusitis [Unknown]

NARRATIVE: CASE EVENT DATE: 20151104
